FAERS Safety Report 25426142 (Version 2)
Quarter: 2025Q3

REPORT INFORMATION
  Report Type: Report from Study
  Country: EU (occurrence: EU)
  Receive Date: 20250612
  Receipt Date: 20250930
  Transmission Date: 20251021
  Serious: Yes (Other)
  Sender: AUROBINDO
  Company Number: EU-Desitin-2025-01143

PATIENT
  Age: 3 Year
  Sex: Female

DRUGS (1)
  1. LEVETIRACETAM [Suspect]
     Active Substance: LEVETIRACETAM
     Indication: Atonic seizures
     Route: 065

REACTIONS (3)
  - Seizure [Unknown]
  - Developmental regression [Unknown]
  - Off label use [Unknown]
